FAERS Safety Report 10683129 (Version 2)
Quarter: 2014Q4

REPORT INFORMATION
  Report Type: Spontaneous
  Country: US (occurrence: None)
  Receive Date: 20141217
  Receipt Date: 20141217
  Transmission Date: 20150529
  Serious: Yes (Life-Threatening)
  Sender: FDA-Public Use
  Company Number: TPA2009A01448

PATIENT
  Age: 48 Year
  Sex: Female
  Weight: 50.8 kg

DRUGS (1)
  1. KAPIDEX [Suspect]
     Active Substance: DEXLANSOPRAZOLE
     Indication: GASTROOESOPHAGEAL REFLUX DISEASE
     Route: 048
     Dates: start: 20090606, end: 20090606

REACTIONS (7)
  - Faecal incontinence [None]
  - Anaphylactic reaction [None]
  - Syncope [None]
  - Urticaria [None]
  - Pharyngeal oedema [None]
  - Urinary incontinence [None]
  - Dyspnoea [None]

NARRATIVE: CASE EVENT DATE: 20090606
